FAERS Safety Report 5298386-1 (Version None)
Quarter: 2007Q2

REPORT INFORMATION
  Report Type: 
  Country: None (occurrence: None)
  Receive Date: 20070416
  Receipt Date: 20070404
  Transmission Date: 20071010
  Serious: Yes (Hospitalization)
  Sender: FDA-Public Use
  Company Number: FR-PFIZER INC-2007027729

PATIENT
  Age: 63 Year
  Sex: Male

DRUGS (3)
  1. TRIFLUCAN [Suspect]
     Route: 048
  2. CYCLOSPORINE [Interacting]
     Indication: TRANSPLANT
     Route: 048
  3. CARBAMAZEPINE [Interacting]
     Indication: EPILEPSY
     Route: 048

REACTIONS (7)
  - ASTHENIA [None]
  - CONFUSIONAL STATE [None]
  - DRUG INTERACTION [None]
  - DRUG LEVEL INCREASED [None]
  - HEADACHE [None]
  - THERAPEUTIC RESPONSE INCREASED [None]
  - VOMITING [None]
